FAERS Safety Report 24395782 (Version 1)
Quarter: 2024Q4

REPORT INFORMATION
  Report Type: Spontaneous
  Country: PL (occurrence: PL)
  Receive Date: 20241004
  Receipt Date: 20241004
  Transmission Date: 20250115
  Serious: Yes (Hospitalization)
  Sender: ROCHE
  Company Number: PL-ROCHE-10000090265

PATIENT

DRUGS (2)
  1. TRASTUZUMAB [Suspect]
     Active Substance: TRASTUZUMAB
     Indication: Breast cancer metastatic
     Route: 065
     Dates: end: 202401
  2. PERTUZUMAB [Suspect]
     Active Substance: PERTUZUMAB
     Indication: Breast cancer metastatic
     Route: 065
     Dates: end: 202401

REACTIONS (3)
  - Ejection fraction decreased [Not Recovered/Not Resolved]
  - Liver abscess [Not Recovered/Not Resolved]
  - Sepsis [Not Recovered/Not Resolved]
